FAERS Safety Report 18169335 (Version 1)
Quarter: 2020Q3

REPORT INFORMATION
  Report Type: Spontaneous
  Country: US (occurrence: US)
  Receive Date: 20200819
  Receipt Date: 20200819
  Transmission Date: 20201103
  Serious: No
  Sender: FDA-Public Use
  Company Number: None

PATIENT
  Sex: Female

DRUGS (20)
  1. MACROBID [Concomitant]
     Active Substance: NITROFURANTOIN\NITROFURANTOIN MONOHYDRATE
  2. MELATONIN [Concomitant]
     Active Substance: MELATONIN
  3. MULTI VIT [Concomitant]
     Active Substance: VITAMINS
  4. XANAX [Concomitant]
     Active Substance: ALPRAZOLAM
  5. ENBREL [Suspect]
     Active Substance: ETANERCEPT
     Indication: RHEUMATOID ARTHRITIS
     Dosage: ?          OTHER FREQUENCY:WEEKLY;?
     Route: 058
     Dates: start: 20160720
  6. FLUCONAZOLE. [Concomitant]
     Active Substance: FLUCONAZOLE
  7. PLAQUENIL [Concomitant]
     Active Substance: HYDROXYCHLOROQUINE SULFATE
  8. PROZAC [Concomitant]
     Active Substance: FLUOXETINE HYDROCHLORIDE
  9. ASMANEX [Concomitant]
     Active Substance: MOMETASONE FUROATE
  10. OMEPRAZOLE. [Concomitant]
     Active Substance: OMEPRAZOLE
  11. TRAMADOL. [Concomitant]
     Active Substance: TRAMADOL
  12. VIT D [Concomitant]
     Active Substance: VITAMIN D NOS
  13. FOLIC ACID. [Concomitant]
     Active Substance: FOLIC ACID
  14. HYDOCOD/APAP [Concomitant]
  15. LEUCOVOR CA [Concomitant]
  16. SULFASALAZINE DELAYED?RELEASE [Concomitant]
     Active Substance: SULFASALAZINE
  17. SYNTHROID [Concomitant]
     Active Substance: LEVOTHYROXINE SODIUM
  18. VITAMIN E [Concomitant]
     Active Substance: .ALPHA.-TOCOPHEROL
  19. ELMIRON [Concomitant]
     Active Substance: PENTOSAN POLYSULFATE SODIUM
  20. PREDNISONE. [Concomitant]
     Active Substance: PREDNISONE

REACTIONS (1)
  - Colon cancer [None]
